FAERS Safety Report 6371229-0 (Version None)
Quarter: 2009Q3

REPORT INFORMATION
  Report Type: 
  Country: None (occurrence: None)
  Receive Date: 20090923
  Receipt Date: 20070517
  Transmission Date: 20100115
  Serious: No
  Sender: FDA-Public Use
  Company Number: US-ASTRAZENECA-2006UW27755

PATIENT
  Age: 48 Year
  Sex: Female
  Weight: 107.7 kg

DRUGS (11)
  1. SEROQUEL [Suspect]
     Dosage: 200 TO 500 MG
     Route: 048
     Dates: start: 20050922
  2. RISPERDAL [Suspect]
     Dates: start: 20020312
  3. ZYPREXA [Suspect]
  4. ABILIFY [Concomitant]
  5. CLOZARIL [Concomitant]
  6. TOPROL-XL [Concomitant]
     Dates: start: 20040219
  7. DOXEPIN HCL [Concomitant]
     Dates: start: 20040219
  8. LOTREL [Concomitant]
     Dosage: 5/20 MG QD
     Dates: start: 20040219
  9. NABUMETONE [Concomitant]
     Dates: start: 20040219
  10. COZAAR [Concomitant]
     Dates: start: 20040219
  11. ELAVIL [Concomitant]
     Dates: start: 19921124

REACTIONS (2)
  - DIABETES MELLITUS [None]
  - OBESITY [None]
